FAERS Safety Report 20370613 (Version 1)
Quarter: 2022Q1

REPORT INFORMATION
  Report Type: Spontaneous
  Country: US (occurrence: None)
  Receive Date: 20220124
  Receipt Date: 20220124
  Transmission Date: 20220423
  Serious: No
  Sender: FDA-Public Use
  Company Number: None

PATIENT
  Sex: Female

DRUGS (1)
  1. TALTZ [Suspect]
     Active Substance: IXEKIZUMAB
     Indication: Psoriasis
     Dosage: OTHER QUANTITY : 80MG/ML;?FREQUENCY : MONTHLY;?
     Route: 058
     Dates: start: 20210730, end: 20220105

REACTIONS (3)
  - Erythema [None]
  - Pruritus [None]
  - Skin burning sensation [None]
